FAERS Safety Report 8220126-4 (Version None)
Quarter: 2012Q1

REPORT INFORMATION
  Report Type: 
  Country: None (occurrence: None)
  Receive Date: 20120320
  Receipt Date: 20120313
  Transmission Date: 20120608
  Serious: No
  Sender: FDA-Public Use
  Company Number: US-BIOGENIDEC-2012BI008927

PATIENT
  Sex: Female

DRUGS (2)
  1. AVONEX [Suspect]
     Indication: MULTIPLE SCLEROSIS
     Route: 030
     Dates: start: 19961101, end: 20071020
  2. AVONEX [Suspect]
     Route: 030
     Dates: start: 20090904

REACTIONS (3)
  - INFLUENZA LIKE ILLNESS [None]
  - SCAR [None]
  - ANXIETY [None]
